FAERS Safety Report 5211809-9 (Version None)
Quarter: 2007Q1

REPORT INFORMATION
  Report Type: 
  Country: None (occurrence: None)
  Receive Date: 20070116
  Receipt Date: 20061228
  Transmission Date: 20070707
  Serious: Yes (Hospitalization)
  Sender: FDA-Public Use
  Company Number: A-JP2006-13828

PATIENT
  Age: 68 Year
  Sex: Female

DRUGS (11)
  1. TRACLEER [Suspect]
     Indication: PULMONARY HYPERTENSION
     Dosage: SEE IMAGE
     Dates: start: 20060731, end: 20060802
  2. TRACLEER [Suspect]
     Indication: PULMONARY HYPERTENSION
     Dosage: SEE IMAGE
     Dates: start: 20060803, end: 20060817
  3. TRACLEER [Suspect]
     Indication: PULMONARY HYPERTENSION
     Dosage: SEE IMAGE
     Dates: start: 20060818, end: 20060904
  4. TRACLEER [Suspect]
     Indication: PULMONARY HYPERTENSION
     Dosage: SEE IMAGE
     Dates: start: 20060905, end: 20061005
  5. TRACLEER [Suspect]
     Indication: PULMONARY HYPERTENSION
     Dosage: SEE IMAGE
     Dates: start: 20061006
  6. WARFARIN SODIUM [Suspect]
  7. BERAPROST SODIUM (BERAPROST SODIUM) [Suspect]
  8. METILDIGOXIN (METILDIGOXIN) [Concomitant]
  9. FUROSEMIDE [Concomitant]
  10. ECABET (ECABET) [Concomitant]
  11. ALLOPURINOL [Concomitant]

REACTIONS (2)
  - NO THERAPEUTIC RESPONSE [None]
  - PULMONARY HAEMORRHAGE [None]
